FAERS Safety Report 16431494 (Version 1)
Quarter: 2019Q3

REPORT INFORMATION
  Report Type: Spontaneous
  Country: US (occurrence: US)
  Receive Date: 20190613
  Receipt Date: 20190613
  Transmission Date: 20191004
  Serious: No
  Sender: FDA-Public Use
  Company Number: None

PATIENT
  Sex: Female

DRUGS (1)
  1. LEVOTHYROXINE 88MCG, HALF TABLET [Suspect]
     Active Substance: LEVOTHYROXINE

REACTIONS (2)
  - Thyroxine free increased [None]
  - Blood thyroid stimulating hormone increased [None]
